FAERS Safety Report 16236951 (Version 1)
Quarter: 2019Q2

REPORT INFORMATION
  Report Type: Spontaneous
  Country: GB (occurrence: GB)
  Receive Date: 20190425
  Receipt Date: 20190425
  Transmission Date: 20190711
  Serious: Yes (Death, Other)
  Sender: FDA-Public Use
  Company Number: GB-ACCORD-124053

PATIENT
  Age: 59 Year
  Sex: Female

DRUGS (13)
  1. AMINOPHYLLINE. [Concomitant]
     Active Substance: AMINOPHYLLINE
  2. MORPHINE [Concomitant]
     Active Substance: MORPHINE
  3. MONTELUKAST [Concomitant]
     Active Substance: MONTELUKAST SODIUM
  4. LANSOPRAZOLE. [Concomitant]
     Active Substance: LANSOPRAZOLE
  5. ACICLOVIR [Concomitant]
     Active Substance: ACYCLOVIR
  6. TRAZODONE [Concomitant]
     Active Substance: TRAZODONE HYDROCHLORIDE
  7. METHOTREXATE. [Suspect]
     Active Substance: METHOTREXATE
     Indication: SPONDYLOARTHROPATHY
     Route: 058
     Dates: start: 20030523, end: 20170905
  8. SERETIDE [Concomitant]
     Active Substance: FLUTICASONE PROPIONATE\SALMETEROL XINAFOATE
  9. ACLIDINIUM BROMIDE. [Concomitant]
     Active Substance: ACLIDINIUM BROMIDE
  10. FLUOXETINE [Concomitant]
     Active Substance: FLUOXETINE HYDROCHLORIDE
  11. SULFASALAZINE. [Suspect]
     Active Substance: SULFASALAZINE
     Indication: SPONDYLOARTHROPATHY
     Route: 048
     Dates: start: 20131118, end: 20180404
  12. PREDNISOLONE. [Concomitant]
     Active Substance: PREDNISOLONE
     Dates: start: 20131118
  13. ALENDRONIC ACID [Concomitant]
     Active Substance: ALENDRONIC ACID

REACTIONS (4)
  - Off label use [Unknown]
  - Effusion [Not Recovered/Not Resolved]
  - Lung consolidation [Not Recovered/Not Resolved]
  - Organising pneumonia [Fatal]

NARRATIVE: CASE EVENT DATE: 20170905
